FAERS Safety Report 9703256 (Version 1)
Quarter: 2013Q4

REPORT INFORMATION
  Report Type: Spontaneous
  Country: GB (occurrence: GB)
  Receive Date: 20131122
  Receipt Date: 20131122
  Transmission Date: 20140711
  Serious: Yes (Disabling)
  Sender: FDA-Public Use
  Company Number: PHHY2013GB131538

PATIENT
  Age: 82 Year
  Sex: Male
  Weight: 68.4 kg

DRUGS (3)
  1. TAMSULOSIN [Suspect]
     Dates: start: 20130904
  2. ATORVASTATIN [Concomitant]
     Indication: PROPHYLAXIS
     Dates: start: 20130718
  3. WARFARIN SODIUM [Concomitant]
     Dates: start: 20130822

REACTIONS (1)
  - Bradycardia [Recovered/Resolved]
